FAERS Safety Report 4866940-4 (Version None)
Quarter: 2005Q4

REPORT INFORMATION
  Report Type: 
  Country: None (occurrence: None)
  Receive Date: 20051222
  Receipt Date: 20051216
  Transmission Date: 20060501
  Serious: Yes (Other)
  Sender: FDA-Public Use
  Company Number: 200511143

PATIENT
  Age: 9 Year
  Sex: Male

DRUGS (3)
  1. FLURINOL                 (EPINASTINE) SYRUP [Suspect]
     Indication: RHINITIS ALLERGIC
  2. FENITOIN [Concomitant]
  3. FLUNITRAZEPAM [Concomitant]

REACTIONS (1)
  - CONVULSION [None]
